FAERS Safety Report 19743444 (Version 5)
Quarter: 2025Q1

REPORT INFORMATION
  Report Type: Spontaneous
  Country: US (occurrence: US)
  Receive Date: 20210825
  Receipt Date: 20250211
  Transmission Date: 20250409
  Serious: No
  Sender: BIOGEN
  Company Number: US-BIOGEN-2021BI01037372

PATIENT
  Sex: Female

DRUGS (23)
  1. TYSABRI [Suspect]
     Active Substance: NATALIZUMAB
     Indication: Relapsing-remitting multiple sclerosis
     Route: 050
     Dates: start: 20151211
  2. TYSABRI [Suspect]
     Active Substance: NATALIZUMAB
     Route: 050
     Dates: start: 20110221, end: 20130117
  3. TYSABRI [Suspect]
     Active Substance: NATALIZUMAB
     Route: 050
  4. TYSABRI [Suspect]
     Active Substance: NATALIZUMAB
     Route: 050
     Dates: start: 2017
  5. TYSABRI [Suspect]
     Active Substance: NATALIZUMAB
     Route: 050
  6. TYSABRI [Suspect]
     Active Substance: NATALIZUMAB
     Route: 050
  7. ALPRAZOLAM [Concomitant]
     Active Substance: ALPRAZOLAM
     Route: 050
  8. BUPROPION HYDROCHLORIDE [Concomitant]
     Active Substance: BUPROPION HYDROCHLORIDE
     Route: 050
  9. CALCIUM [Concomitant]
     Active Substance: CALCIUM
     Route: 050
  10. CRANBERRY [Concomitant]
     Active Substance: CRANBERRY
     Route: 050
  11. CYCLOSPORINE [Concomitant]
     Active Substance: CYCLOSPORINE
     Route: 050
  12. ESCITALOPRAM [Concomitant]
     Active Substance: ESCITALOPRAM OXALATE
     Route: 050
  13. ESOMEPRAZOLE [Concomitant]
     Active Substance: ESOMEPRAZOLE
     Route: 050
  14. HYDROXYZINE [Concomitant]
     Active Substance: HYDROXYZINE HYDROCHLORIDE
     Route: 050
  15. LEVETIRACETAM [Concomitant]
     Active Substance: LEVETIRACETAM
     Route: 050
  16. MIRALAX [Concomitant]
     Active Substance: POLYETHYLENE GLYCOL 3350
     Route: 050
  17. PROLIA [Concomitant]
     Active Substance: DENOSUMAB
     Route: 050
  18. ROSUVASTATIN [Concomitant]
     Active Substance: ROSUVASTATIN
     Route: 050
  19. TIZANIDINE HYDROCHLORIDE [Concomitant]
     Active Substance: TIZANIDINE HYDROCHLORIDE
     Route: 050
  20. VALACYCLOVIR [Concomitant]
     Active Substance: VALACYCLOVIR HYDROCHLORIDE
     Route: 050
  21. VITAMIN C [Concomitant]
     Active Substance: ASCORBIC ACID
     Route: 050
  22. VITAMIN D [Concomitant]
     Active Substance: VITAMIN D NOS
     Route: 050
  23. MEMANTINE [Concomitant]
     Active Substance: MEMANTINE
     Route: 050

REACTIONS (5)
  - Prescribed underdose [Not Recovered/Not Resolved]
  - Infusion site rash [Not Recovered/Not Resolved]
  - Erythema [Not Recovered/Not Resolved]
  - COVID-19 [Unknown]
  - Pruritus [Unknown]

NARRATIVE: CASE EVENT DATE: 20200101
